FAERS Safety Report 9304959 (Version 1)
Quarter: 2013Q2

REPORT INFORMATION
  Report Type: Other
  Country: GB (occurrence: GB)
  Receive Date: 20130523
  Receipt Date: 20130523
  Transmission Date: 20140414
  Serious: Yes (Hospitalization)
  Sender: FDA-Public Use
  Company Number: GB-SUN PHARMACEUTICAL INDUSTRIES LTD-2012SUN00271

PATIENT
  Age: 66 Year
  Sex: Male

DRUGS (12)
  1. GEMCITABINE INJECTION [Suspect]
     Indication: PRODUCT USED FOR UNKNOWN INDICATION
     Dosage: UNK
     Route: 065
     Dates: start: 20120926, end: 20121108
  2. CISPLATIN [Suspect]
     Indication: PRODUCT USED FOR UNKNOWN INDICATION
     Dosage: 135 MG, UNK
     Route: 042
     Dates: start: 20120926, end: 20121121
  3. MORPHINE SULFATE [Suspect]
     Indication: PRODUCT USED FOR UNKNOWN INDICATION
     Dosage: 100 MG, QD
     Route: 048
     Dates: start: 20121001
  4. ORAMORPH [Suspect]
     Indication: PRODUCT USED FOR UNKNOWN INDICATION
     Dosage: UNK
     Route: 048
     Dates: start: 20120918
  5. SUNITINIB MALATE [Suspect]
     Indication: TRANSITIONAL CELL CARCINOMA
     Dosage: 25 MG, UNK
     Route: 065
     Dates: start: 20120927, end: 20120929
  6. DULCOLAX [Concomitant]
     Dosage: UNK
     Route: 048
     Dates: start: 201206
  7. HYDROCORTISONE SODIUM SUCCINATE [Concomitant]
     Dosage: UNK, QD
     Route: 048
  8. METOCLOPRAMIDE [Concomitant]
     Dosage: UNK, QD
     Route: 048
     Dates: start: 20120921
  9. MOVICOL [Concomitant]
     Route: 048
  10. PARACETAMOL [Concomitant]
     Dosage: 4 MG, QD
     Route: 048
     Dates: start: 201206
  11. PREDNISOLONE [Concomitant]
     Dosage: 7.5 MG, QD
     Route: 048
     Dates: start: 201009
  12. TAMSULOSIN [Concomitant]
     Dosage: 400 MG, QD
     Route: 048
     Dates: start: 20120401

REACTIONS (3)
  - Deep vein thrombosis [Not Recovered/Not Resolved]
  - Vomiting [Recovered/Resolved]
  - Nausea [Not Recovered/Not Resolved]
